FAERS Safety Report 9155554 (Version 1)
Quarter: 2013Q1

REPORT INFORMATION
  Report Type: Spontaneous
  Country: US (occurrence: US)
  Receive Date: 20130311
  Receipt Date: 20130311
  Transmission Date: 20140127
  Serious: No
  Sender: FDA-Public Use
  Company Number: US-TEVA-390863USA

PATIENT
  Age: 75 Year
  Sex: Female
  Weight: 61.29 kg

DRUGS (1)
  1. QNASL [Suspect]
     Indication: SEASONAL ALLERGY
     Dosage: 1 SPRAY
     Dates: start: 20130305

REACTIONS (3)
  - Nasal discomfort [Unknown]
  - Throat irritation [Unknown]
  - Dysgeusia [Unknown]
